FAERS Safety Report 4264414-5 (Version None)
Quarter: 2004Q1

REPORT INFORMATION
  Report Type: 
  Country: None (occurrence: None)
  Receive Date: 20040106
  Receipt Date: 20030819
  Transmission Date: 20041129
  Serious: Yes (Other)
  Sender: FDA-Public Use
  Company Number: US-GLAXOSMITHKLINE-A0422652A

PATIENT
  Age: 28 Year
  Sex: Female

DRUGS (4)
  1. PAXIL [Suspect]
     Indication: GENERALISED ANXIETY DISORDER
     Dosage: 10MG PER DAY
     Route: 048
     Dates: start: 20010201
  2. NONE [Concomitant]
  3. PAXIL [Suspect]
     Dosage: 12.5MG PER DAY
     Route: 048
  4. PAXIL [Suspect]
     Dosage: 5MG PER DAY
     Route: 048

REACTIONS (14)
  - DIZZINESS [None]
  - DRUG WITHDRAWAL SYNDROME [None]
  - FATIGUE [None]
  - HEADACHE [None]
  - HEPATIC ENZYME INCREASED [None]
  - INFLUENZA LIKE ILLNESS [None]
  - MIGRAINE [None]
  - MUSCLE TWITCHING [None]
  - NAUSEA [None]
  - PAIN [None]
  - PARAESTHESIA [None]
  - PHOTOSENSITIVITY REACTION [None]
  - SEDATION [None]
  - TREATMENT NONCOMPLIANCE [None]
